FAERS Safety Report 8030893-0 (Version None)
Quarter: 2011Q4

REPORT INFORMATION
  Report Type: 
  Country: None (occurrence: None)
  Receive Date: 20111202
  Receipt Date: 20100927
  Transmission Date: 20120403
  Serious: Yes (Hospitalization, Other)
  Sender: FDA-Public Use
  Company Number: 2010SP051451

PATIENT
  Age: 21 Year
  Sex: Female
  Weight: 76.2043 kg

DRUGS (2)
  1. NUVARING [Suspect]
     Indication: CONTRACEPTION
     Dosage: ;QM;
     Dates: start: 20090101, end: 20090809
  2. NUVARING [Suspect]
     Indication: MENSTRUAL DISORDER
     Dosage: ;QM;
     Dates: start: 20090101, end: 20090809

REACTIONS (5)
  - CERVICAL DYSPLASIA [None]
  - DYSURIA [None]
  - PULMONARY INFARCTION [None]
  - PULMONARY EMBOLISM [None]
  - BACK PAIN [None]
